FAERS Safety Report 5888209-1 (Version None)
Quarter: 2008Q3

REPORT INFORMATION
  Report Type: 
  Country: None (occurrence: None)
  Receive Date: 20080918
  Receipt Date: 20080910
  Transmission Date: 20090109
  Serious: Yes (Hospitalization)
  Sender: FDA-Public Use
  Company Number: DK-ABBOTT-08P-044-0475613-00

PATIENT
  Sex: Female

DRUGS (9)
  1. HUMIRA [Suspect]
     Indication: RHEUMATOID ARTHRITIS
     Route: 058
     Dates: start: 20030911
  2. HUMIRA [Suspect]
     Route: 058
     Dates: start: 20071001
  3. METHOTREXATE [Concomitant]
     Indication: DRUG USE FOR UNKNOWN INDICATION
     Route: 048
     Dates: start: 20030911, end: 20030911
  4. METHOTREXATE [Concomitant]
     Dates: start: 20040318, end: 20050614
  5. METHOTREXATE [Concomitant]
     Dates: start: 20051209, end: 20060919
  6. METHOTREXATE [Concomitant]
     Dates: start: 20070611, end: 20071001
  7. SULFASALAZINE [Concomitant]
     Indication: DRUG USE FOR UNKNOWN INDICATION
     Route: 048
     Dates: start: 20030911, end: 20050906
  8. SULFASALAZINE [Concomitant]
     Dates: start: 20060515, end: 20060919
  9. SULFASALAZINE [Concomitant]
     Dates: start: 20071001

REACTIONS (1)
  - ARTHRITIS [None]
